FAERS Safety Report 7426979-1 (Version None)
Quarter: 2011Q2

REPORT INFORMATION
  Report Type: 
  Country: None (occurrence: None)
  Receive Date: 20110420
  Receipt Date: 20110412
  Transmission Date: 20111010
  Serious: Yes (Death, Hospitalization)
  Sender: FDA-Public Use
  Company Number: GXBR2011US01395

PATIENT
  Sex: Female

DRUGS (9)
  1. FLUOROURACIL [Suspect]
     Dosage: UNK MG, EVERY TWO WEEKS
     Route: 051
     Dates: start: 20110221, end: 20110223
  2. HEPARIN [Concomitant]
     Indication: PREMEDICATION
     Dosage: UNK U, UNK
  3. DIPHENHYDRAMINE HCL [Concomitant]
     Indication: PREMEDICATION
     Dosage: UNK MG, UNK
  4. ALOXI [Concomitant]
     Indication: PREMEDICATION
     Dosage: UNK MG, UNK
  5. LEUCOVORIN [Suspect]
     Dosage: UNK MG, EVERY TWO WEEKS
     Route: 051
     Dates: start: 20110221, end: 20110221
  6. FLUOROURACIL [Suspect]
     Indication: COLON CANCER
     Dosage: UNK MG, EVERY TWO WEEKS
     Route: 051
     Dates: start: 20101229
  7. ELOXATIN [Suspect]
     Indication: COLON CANCER
     Dosage: 5 MG/ML, EVERY TWO WEEKS
     Route: 051
     Dates: start: 20101229, end: 20101229
  8. LEUCOVORIN [Suspect]
     Indication: COLON CANCER
     Dosage: UNK MG, EVERY TWO WEEKS
     Route: 051
     Dates: start: 20101229, end: 20101229
  9. ELOXATIN [Suspect]
     Dosage: 5 MG/ML,  EVERY TWO WEEKS
     Route: 051
     Dates: start: 20110221, end: 20110221

REACTIONS (2)
  - DEEP VEIN THROMBOSIS [None]
  - ARRHYTHMIA [None]
